FAERS Safety Report 16946973 (Version 2)
Quarter: 2019Q4

REPORT INFORMATION
  Report Type: Report from Study
  Country: US (occurrence: US)
  Receive Date: 20191022
  Receipt Date: 20191114
  Transmission Date: 20200122
  Serious: Yes (Other)
  Sender: FDA-Public Use
  Company Number: US-GLAXOSMITHKLINE-2019-TSO00990-US

PATIENT
  Age: 80 Year
  Sex: Female

DRUGS (4)
  1. CLINDAMYCIN. [Concomitant]
     Active Substance: CLINDAMYCIN
     Indication: PRODUCT USED FOR UNKNOWN INDICATION
     Dosage: ONE TIME DOSE
  2. NIRAPARIB [Suspect]
     Active Substance: NIRAPARIB
     Dosage: 200 MG, DAILY AFTER LUNCH IN AFTERNOON
     Route: 048
     Dates: start: 20190330
  3. NIRAPARIB [Suspect]
     Active Substance: NIRAPARIB
     Dosage: 200 MG, DAILY AFTER LUNCH IN AFTERNOON
     Route: 048
  4. NIRAPARIB [Suspect]
     Active Substance: NIRAPARIB
     Indication: OVARIAN CANCER
     Dosage: 300 MG, Q NOON WITH FOOD
     Route: 048
     Dates: start: 20190218, end: 20190314

REACTIONS (17)
  - Balance disorder [Not Recovered/Not Resolved]
  - Dental implantation [Recovered/Resolved]
  - Platelet count decreased [Not Recovered/Not Resolved]
  - Skin neoplasm excision [Unknown]
  - Full blood count decreased [Not Recovered/Not Resolved]
  - Decreased appetite [Recovered/Resolved]
  - Fatigue [Not Recovered/Not Resolved]
  - Blood pressure increased [Recovering/Resolving]
  - Insomnia [Unknown]
  - Red blood cell count decreased [Unknown]
  - Glossodynia [Unknown]
  - Swollen tongue [Unknown]
  - Muscular weakness [Not Recovered/Not Resolved]
  - Platelet count decreased [Recovered/Resolved]
  - Recurrent cancer [Unknown]
  - Rash [Recovered/Resolved]
  - Swelling [Unknown]

NARRATIVE: CASE EVENT DATE: 2019
